FAERS Safety Report 23729329 (Version 1)
Quarter: 2024Q2

REPORT INFORMATION
  Report Type: Spontaneous
  Country: US (occurrence: US)
  Receive Date: 20240410
  Receipt Date: 20240410
  Transmission Date: 20240716
  Serious: No
  Sender: FDA-Public Use
  Company Number: US-FOUNDATIONCONSUMERHC-2024-US-011658

PATIENT
  Age: 22 Year
  Sex: Female
  Weight: 53.07 kg

DRUGS (4)
  1. PLAN B ONE-STEP [Suspect]
     Active Substance: LEVONORGESTREL
     Indication: Post coital contraception
     Dosage: 1 DOSE
     Route: 048
     Dates: start: 20240221, end: 20240221
  2. VITAMIN D [Concomitant]
     Active Substance: VITAMIN D NOS
  3. VITAMINS [Concomitant]
     Active Substance: VITAMINS
  4. IRON [Concomitant]
     Active Substance: IRON

REACTIONS (7)
  - Dysmenorrhoea [Not Recovered/Not Resolved]
  - Vaginal discharge [Recovered/Resolved]
  - Heart rate increased [Recovered/Resolved]
  - Restlessness [Recovered/Resolved]
  - Breast tenderness [Not Recovered/Not Resolved]
  - Anxiety [Recovered/Resolved]
  - Vaginal haemorrhage [Not Recovered/Not Resolved]

NARRATIVE: CASE EVENT DATE: 20240222
